FAERS Safety Report 14709426 (Version 1)
Quarter: 2018Q2

REPORT INFORMATION
  Report Type: Spontaneous
  Country: PT (occurrence: PT)
  Receive Date: 20180403
  Receipt Date: 20180403
  Transmission Date: 20180711
  Serious: Yes (Hospitalization, Other)
  Sender: FDA-Public Use
  Company Number: PT-GLENMARK PHARMACEUTICALS-2018GMK033874

PATIENT
  Age: 15 Year
  Sex: Female

DRUGS (1)
  1. DESMOPRESSIN ACETATE. [Suspect]
     Active Substance: DESMOPRESSIN ACETATE
     Indication: PRODUCT USED FOR UNKNOWN INDICATION
     Dosage: UNK
     Route: 065

REACTIONS (4)
  - Adrenocortical insufficiency acute [Recovering/Resolving]
  - Water intoxication [Recovering/Resolving]
  - Hypoglycaemia [Unknown]
  - Altered state of consciousness [Recovering/Resolving]
